FAERS Safety Report 6223228-7 (Version None)
Quarter: 2009Q2

REPORT INFORMATION
  Report Type: 
  Country: None (occurrence: None)
  Receive Date: 20090611
  Receipt Date: 20090605
  Transmission Date: 20091009
  Serious: Yes (Hospitalization)
  Sender: FDA-Public Use
  Company Number: US-B.I. PHARMACEUTICALS,INC./RIDGEFIELD-2009-BP-06893BP

PATIENT
  Age: 58 Year
  Sex: Female

DRUGS (3)
  1. DULCOLAX [Suspect]
     Indication: CONSTIPATION
     Dosage: 10MG
     Route: 048
     Dates: start: 20090531, end: 20090531
  2. ZOCOR [Concomitant]
     Indication: BLOOD CHOLESTEROL INCREASED
  3. BENAZEPRIL HYDROCHLORIDE [Concomitant]
     Indication: BLOOD PRESSURE INCREASED

REACTIONS (4)
  - ABDOMINAL PAIN [None]
  - ASTHENIA [None]
  - HAEMATOCHEZIA [None]
  - VOMITING [None]
